FAERS Safety Report 9103864 (Version 1)
Quarter: 2013Q1

REPORT INFORMATION
  Report Type: Spontaneous
  Country: JP (occurrence: JP)
  Receive Date: 20130219
  Receipt Date: 20130219
  Transmission Date: 20140127
  Serious: No
  Sender: FDA-Public Use
  Company Number: JP-ROCHE-1192204

PATIENT
  Age: 64 Year
  Sex: Male

DRUGS (1)
  1. TAMIFLU [Suspect]
     Indication: INFLUENZA
     Route: 048
     Dates: start: 20130210, end: 20130212

REACTIONS (2)
  - Pain [Unknown]
  - Overdose [Unknown]
